FAERS Safety Report 9908174 (Version 1)
Quarter: 2014Q1

REPORT INFORMATION
  Report Type: Spontaneous
  Country: US (occurrence: None)
  Receive Date: 20140212
  Receipt Date: 20140212
  Transmission Date: 20141002
  Serious: Yes (Other)
  Sender: FDA-Public Use
  Company Number: None

PATIENT
  Age: 78 Year
  Sex: Female
  Weight: 68.04 kg

DRUGS (5)
  1. MIRVASO [Suspect]
     Indication: ROSACEA
     Dosage: PEA ZIED AMOT TO NOSE AND EACH CHEEK ONCE DAILY APPLEID TO FACE WHERE NEEDED
     Dates: start: 20140117, end: 20140130
  2. GENERIC LUPTIN [Concomitant]
  3. MIRALAX [Concomitant]
  4. METROGEL [Concomitant]
  5. IBUPROPHEN [Concomitant]

REACTIONS (3)
  - Burning sensation [None]
  - Swelling face [None]
  - Erythema [None]
